FAERS Safety Report 9291411 (Version 1)
Quarter: 2013Q2

REPORT INFORMATION
  Report Type: Spontaneous
  Country: CA (occurrence: CA)
  Receive Date: 20130515
  Receipt Date: 20130515
  Transmission Date: 20140414
  Serious: Yes (Other)
  Sender: FDA-Public Use
  Company Number: CA-BAXTER-2012BAX003547

PATIENT
  Age: 2 Year
  Sex: Male
  Weight: 31.8 kg

DRUGS (2)
  1. GAMMAGARD LIQUID [Suspect]
     Indication: NEUROPATHY PERIPHERAL
     Route: 042
     Dates: start: 20120320, end: 20120320
  2. GAMMAGARD LIQUID [Suspect]
     Indication: OFF LABEL USE

REACTIONS (27)
  - Renal failure acute [Recovering/Resolving]
  - Liver injury [Recovering/Resolving]
  - Vasculitis [Recovering/Resolving]
  - Decreased appetite [Recovering/Resolving]
  - Somnolence [Recovering/Resolving]
  - Rash [Recovering/Resolving]
  - Sinus tachycardia [Recovering/Resolving]
  - Heart rate abnormal [Recovering/Resolving]
  - Asthenia [Recovering/Resolving]
  - Abdominal distension [Recovering/Resolving]
  - Haematuria [Recovering/Resolving]
  - Glycosuria [Recovering/Resolving]
  - Proteinuria [Recovering/Resolving]
  - Oedema [Recovering/Resolving]
  - Effusion [Recovering/Resolving]
  - Tachypnoea [Recovering/Resolving]
  - Hypertension [Recovering/Resolving]
  - Anaemia [Recovering/Resolving]
  - Hypoalbuminaemia [Recovering/Resolving]
  - Urinary tract infection [Recovering/Resolving]
  - Ascites [Recovering/Resolving]
  - Ecchymosis [Recovering/Resolving]
  - Rales [Recovering/Resolving]
  - Eye swelling [Recovering/Resolving]
  - Local swelling [Recovering/Resolving]
  - Back pain [Recovering/Resolving]
  - Hypersensitivity [Recovering/Resolving]
